FAERS Safety Report 6139299-2 (Version None)
Quarter: 2009Q2

REPORT INFORMATION
  Report Type: 
  Country: None (occurrence: None)
  Receive Date: 20090401
  Receipt Date: 20090320
  Transmission Date: 20091009
  Serious: Yes (Other)
  Sender: FDA-Public Use
  Company Number: FR-RANBAXY-2009RR-23007

PATIENT
  Age: 17 Year
  Sex: Female

DRUGS (3)
  1. FLUOXETINE [Suspect]
     Indication: ANOREXIA NERVOSA
     Dosage: UNK
     Dates: end: 20040426
  2. CYAMEMAZINE [Suspect]
  3. CLORAZEPATE/ACEPROMAZINE/ACEPROMETAZINE [Suspect]

REACTIONS (1)
  - AGRANULOCYTOSIS [None]
